FAERS Safety Report 25828239 (Version 1)
Quarter: 2025Q3

REPORT INFORMATION
  Report Type: Spontaneous
  Country: US (occurrence: None)
  Receive Date: 20250921
  Receipt Date: 20250921
  Transmission Date: 20251021
  Serious: No
  Sender: Harrow Health
  Company Number: US-HARROW-HAR-2025-US-00457

PATIENT
  Age: 65 Year
  Sex: Female

DRUGS (1)
  1. VEVYE [Suspect]
     Active Substance: CYCLOSPORINE
     Route: 047
     Dates: start: 202504, end: 20250630

REACTIONS (8)
  - Ocular discomfort [Unknown]
  - Eye irritation [Unknown]
  - Headache [Unknown]
  - Therapy interrupted [Unknown]
  - Dry eye [Not Recovered/Not Resolved]
  - Asthenopia [Unknown]
  - Vision blurred [Unknown]
  - Product quality issue [Unknown]

NARRATIVE: CASE EVENT DATE: 20250501
